FAERS Safety Report 23681343 (Version 1)
Quarter: 2024Q1

REPORT INFORMATION
  Report Type: Report from Study
  Country: CA (occurrence: CA)
  Receive Date: 20240328
  Receipt Date: 20240328
  Transmission Date: 20240410
  Serious: Yes (Other)
  Sender: FDA-Public Use
  Company Number: CA-002147023-NVSC2024CA055043

PATIENT
  Sex: Male

DRUGS (1)
  1. LEQVIO [Suspect]
     Active Substance: INCLISIRAN SODIUM
     Indication: Arteriosclerosis
     Dosage: UNK
     Route: 058
     Dates: start: 20240101

REACTIONS (7)
  - Pneumonia [Unknown]
  - Malaise [Unknown]
  - Rash [Unknown]
  - Cough [Unknown]
  - International normalised ratio abnormal [Recovering/Resolving]
  - Lethargy [Unknown]
  - Fatigue [Unknown]
